FAERS Safety Report 4801801-8 (Version None)
Quarter: 2005Q4

REPORT INFORMATION
  Report Type: 
  Country: None (occurrence: None)
  Receive Date: 20051014
  Receipt Date: 20051014
  Transmission Date: 20060501
  Serious: Yes (Hospitalization)
  Sender: FDA-Public Use
  Company Number: None

PATIENT
  Sex: Male
  Weight: 85.8 kg

DRUGS (3)
  1. CELEBREX [Suspect]
     Indication: OSTEOARTHRITIS
     Dosage: 200 MG QDAY PO
     Route: 048
  2. CELEBREX [Suspect]
     Indication: PAIN
     Dosage: 200 MG QDAY PO
     Route: 048
  3. ALTACE [Suspect]
     Indication: HYPERTENSION
     Dosage: 10 MG QDAY PO
     Route: 048

REACTIONS (3)
  - FAECES DISCOLOURED [None]
  - HAEMATOCHEZIA [None]
  - RECTAL HAEMORRHAGE [None]
